FAERS Safety Report 9256395 (Version 1)
Quarter: 2013Q2

REPORT INFORMATION
  Report Type: Spontaneous
  Country: US (occurrence: US)
  Receive Date: 20130425
  Receipt Date: 20130425
  Transmission Date: 20140414
  Serious: No
  Sender: FDA-Public Use
  Company Number: US-009507513-1304USA009540

PATIENT
  Age: 55 Year
  Sex: Female

DRUGS (4)
  1. NOXAFIL [Suspect]
     Indication: FUNGAL INFECTION
     Dosage: UNK
     Route: 048
     Dates: start: 201210, end: 20121018
  2. NOXAFIL [Suspect]
     Dosage: 9ML DOSE IN THE MORNING AND NIGHT
     Route: 048
  3. NOXAFIL [Suspect]
     Dosage: TWO 5ML DOSES TWICE A DAY
     Route: 048
  4. AMPHOTERICIN B [Concomitant]

REACTIONS (9)
  - Liver function test abnormal [Recovering/Resolving]
  - Alopecia [Unknown]
  - Rash [Unknown]
  - Anxiety [Unknown]
  - Blood pressure increased [Unknown]
  - Insomnia [Unknown]
  - Renal disorder [Unknown]
  - Blood creatinine increased [Unknown]
  - Face injury [Unknown]
